FAERS Safety Report 6704991-5 (Version None)
Quarter: 2010Q2

REPORT INFORMATION
  Report Type: 
  Country: None (occurrence: None)
  Receive Date: 20100430
  Receipt Date: 20100423
  Transmission Date: 20101027
  Serious: Yes (Disabling)
  Sender: FDA-Public Use
  Company Number: A0856479A

PATIENT
  Age: 70 Year
  Sex: Male

DRUGS (7)
  1. ARIXTRA [Suspect]
     Indication: PULMONARY EMBOLISM
     Dosage: 7.5MG PER DAY
     Route: 058
     Dates: start: 20090701
  2. NORVASC [Concomitant]
  3. SYNTHROID [Concomitant]
  4. FLONASE [Concomitant]
  5. ZEGERID [Concomitant]
  6. MUSE [Concomitant]
  7. NITROGLYCERIN [Concomitant]

REACTIONS (4)
  - GAIT DISTURBANCE [None]
  - OEDEMA [None]
  - OEDEMA PERIPHERAL [None]
  - PAIN [None]
